FAERS Safety Report 6703745-3 (Version None)
Quarter: 2010Q2

REPORT INFORMATION
  Report Type: 
  Country: None (occurrence: None)
  Receive Date: 20100428
  Receipt Date: 20100414
  Transmission Date: 20101027
  Serious: Yes (Hospitalization)
  Sender: FDA-Public Use
  Company Number: 010197

PATIENT
  Sex: Male

DRUGS (12)
  1. VIMPAT [Suspect]
     Dosage: 200 MG
     Dates: start: 20091124
  2. LYRICA [Concomitant]
  3. MICROLAX [Concomitant]
  4. LAMICTAL [Concomitant]
  5. LASILETTEN [Concomitant]
  6. CARBAMAZEPINE [Concomitant]
  7. ELOCON [Concomitant]
  8. DIAZEPAM [Concomitant]
  9. FRISIUM [Concomitant]
  10. LASIX [Concomitant]
  11. HYDROCORTISONE [Concomitant]
  12. RIVOTRIL [Concomitant]

REACTIONS (2)
  - CHOREA [None]
  - SOMNOLENCE [None]
